FAERS Safety Report 12509230 (Version 2)
Quarter: 2016Q3

REPORT INFORMATION
  Report Type: Spontaneous
  Country: GB (occurrence: GB)
  Receive Date: 20160629
  Receipt Date: 20160810
  Transmission Date: 20161109
  Serious: Yes (Hospitalization)
  Sender: FDA-Public Use
  Company Number: GB-JNJFOC-20160619350

PATIENT

DRUGS (2)
  1. AZATHIOPRINE. [Concomitant]
     Active Substance: AZATHIOPRINE
     Route: 065
  2. INFLIXIMAB, RECOMBINANT [Suspect]
     Active Substance: INFLIXIMAB
     Indication: CROHN^S DISEASE
     Dosage: 5 MG/KG FOR CHILD (WITH 40 KG) INDUCTION DOSES AT 0,2, 6 WEEKS AND MAINTENANCE 8 WEEKLY INTERVAL.
     Route: 042

REACTIONS (3)
  - Infusion related reaction [Unknown]
  - Therapeutic response decreased [Unknown]
  - Infection [Unknown]
